FAERS Safety Report 9106007 (Version 2)
Quarter: 2013Q2

REPORT INFORMATION
  Report Type: Report from Study
  Country: US (occurrence: US)
  Receive Date: 20130220
  Receipt Date: 20130419
  Transmission Date: 20140414
  Serious: Yes (Other)
  Sender: FDA-Public Use
  Company Number: US-US-EMD SERONO, INC.-7193707

PATIENT
  Age: 57 Year
  Sex: Female

DRUGS (5)
  1. REBIF [Suspect]
     Indication: PRODUCT USED FOR UNKNOWN INDICATION
     Route: 058
     Dates: start: 20110330, end: 20130115
  2. REBIF [Suspect]
     Dates: start: 20130129, end: 20130131
  3. REBIF [Suspect]
     Dates: start: 20130211
  4. ALEVE                              /00256202/ [Concomitant]
     Indication: PREMEDICATION
  5. HYDROCODONE [Concomitant]
     Indication: ARTHRITIS

REACTIONS (9)
  - Pneumonia [Unknown]
  - Bronchitis [Unknown]
  - Coordination abnormal [Not Recovered/Not Resolved]
  - Temperature intolerance [Not Recovered/Not Resolved]
  - Joint stiffness [Unknown]
  - Chills [Unknown]
  - Headache [Unknown]
  - Arthralgia [Unknown]
  - Fatigue [Not Recovered/Not Resolved]
